FAERS Safety Report 23352353 (Version 1)
Quarter: 2023Q4

REPORT INFORMATION
  Report Type: Spontaneous
  Country: CN (occurrence: CN)
  Receive Date: 20231229
  Receipt Date: 20231229
  Transmission Date: 20240110
  Serious: Yes (Other)
  Sender: FDA-Public Use
  Company Number: CN-PFIZER INC-202300451355

PATIENT
  Age: 3 Year
  Sex: Female
  Weight: 20 kg

DRUGS (1)
  1. ZITHROMAX [Suspect]
     Active Substance: AZITHROMYCIN DIHYDRATE
     Indication: Pneumonia mycoplasmal
     Dosage: 2 BAGS A DAY FOR 5 DAYS.
     Route: 048

REACTIONS (2)
  - Pneumonia mycoplasmal [Unknown]
  - Off label use [Unknown]
